FAERS Safety Report 14694245 (Version 1)
Quarter: 2018Q1

REPORT INFORMATION
  Report Type: Spontaneous
  Country: US (occurrence: US)
  Receive Date: 20180328
  Receipt Date: 20180328
  Transmission Date: 20180509
  Serious: Yes (Other)
  Sender: FDA-Public Use
  Company Number: None

PATIENT
  Age: 55 Year
  Sex: Female
  Weight: 86.85 kg

DRUGS (3)
  1. DILT-XR [Concomitant]
     Active Substance: DILTIAZEM
  2. PRADAXA [Suspect]
     Active Substance: DABIGATRAN ETEXILATE MESYLATE
     Indication: CEREBROVASCULAR ACCIDENT
     Dosage: ?          QUANTITY:1 CAPSULE(S);?
     Route: 048
     Dates: start: 20180322, end: 20180322
  3. CENTRUM SILVER MULTIVITAMINS [Concomitant]

REACTIONS (3)
  - Dizziness [None]
  - Chromaturia [None]
  - Nausea [None]

NARRATIVE: CASE EVENT DATE: 20180322
